FAERS Safety Report 18292991 (Version 1)
Quarter: 2020Q3

REPORT INFORMATION
  Report Type: Spontaneous
  Country: US (occurrence: US)
  Receive Date: 20200921
  Receipt Date: 20200921
  Transmission Date: 20201103
  Serious: No
  Sender: FDA-Public Use
  Company Number: NVSC2020US257025

PATIENT

DRUGS (2)
  1. VOLTAREN [Suspect]
     Active Substance: DICLOFENAC SODIUM
     Indication: SCIATICA
     Dosage: 1 DF, QD, INCH TO TWO INCHES, 1D
     Route: 065
     Dates: start: 20200915, end: 20200915
  2. MELOXICAM. [Suspect]
     Active Substance: MELOXICAM
     Indication: SCIATICA
     Dosage: UNK
     Route: 065

REACTIONS (4)
  - Product administered at inappropriate site [Unknown]
  - Product use in unapproved indication [Unknown]
  - Incorrect dose administered [Unknown]
  - Product use issue [Unknown]
